FAERS Safety Report 24273027 (Version 2)
Quarter: 2024Q3

REPORT INFORMATION
  Report Type: Spontaneous
  Country: JP (occurrence: JP)
  Receive Date: 20240902
  Receipt Date: 20240913
  Transmission Date: 20241017
  Serious: Yes (Other)
  Sender: CHATTEM
  Company Number: JP-OPELLA-2024OHG030040

PATIENT
  Age: 8 Year
  Sex: Male

DRUGS (3)
  1. XYZAL ALLERGY 24HR [Suspect]
     Active Substance: LEVOCETIRIZINE DIHYDROCHLORIDE
     Indication: Hypersensitivity
     Route: 048
     Dates: start: 20230315, end: 20230321
  2. BECLOMETHASONE DIPROPIONATE [Concomitant]
     Active Substance: BECLOMETHASONE DIPROPIONATE
     Indication: Product used for unknown indication
     Dates: start: 20230315, end: 20230321
  3. ALESION [Concomitant]
     Active Substance: EPINASTINE HYDROCHLORIDE
     Indication: Product used for unknown indication
     Dates: start: 20230315, end: 20230321

REACTIONS (1)
  - Erythema multiforme [Unknown]
